FAERS Safety Report 15969142 (Version 1)
Quarter: 2019Q1

REPORT INFORMATION
  Report Type: Report from Study
  Country: CA (occurrence: CA)
  Receive Date: 20190215
  Receipt Date: 20190215
  Transmission Date: 20190418
  Serious: Yes (Other)
  Sender: FDA-Public Use
  Company Number: CA-JNJFOC-20181035712

PATIENT
  Age: 47 Year
  Sex: Female
  Weight: 86.5 kg

DRUGS (15)
  1. APO ESOMEPRAZOLE [Concomitant]
     Active Substance: ESOMEPRAZOLE MAGNESIUM
     Route: 048
  2. CALCIUM [Concomitant]
     Active Substance: CALCIUM
     Route: 048
  3. LIPIDIL EZ [Concomitant]
     Active Substance: FENOFIBRATE
     Route: 048
  4. JAMP CELECOXIB [Concomitant]
     Route: 048
  5. PERINDOPRIL [Concomitant]
     Active Substance: PERINDOPRIL
     Route: 048
  6. LUPRON DEPOT [Concomitant]
     Active Substance: LEUPROLIDE ACETATE
     Route: 030
  7. NASONEX [Concomitant]
     Active Substance: MOMETASONE FUROATE
     Route: 045
  8. REMICADE [Suspect]
     Active Substance: INFLIXIMAB
     Indication: RHEUMATOID ARTHRITIS
     Dosage: STRENGTH = 100 MG
     Route: 042
     Dates: start: 20110803
  9. VITAMIN D [Concomitant]
     Active Substance: CHOLECALCIFEROL
     Route: 048
  10. REACTINE [CETIRIZINE HYDROCHLORIDE] [Concomitant]
     Active Substance: CETIRIZINE HYDROCHLORIDE
     Route: 048
  11. FENOFIBRATE. [Concomitant]
     Active Substance: FENOFIBRATE
     Route: 048
  12. PMS-LOPERAMIDE [Concomitant]
     Route: 048
  13. VITAMINA B12 [Concomitant]
     Route: 030
  14. REMICADE [Suspect]
     Active Substance: INFLIXIMAB
     Indication: CROHN^S DISEASE
     Dosage: STRENGTH = 100 MG
     Route: 042
     Dates: start: 20110803
  15. VENLAFAXINE [Concomitant]
     Active Substance: VENLAFAXINE HYDROCHLORIDE
     Route: 048

REACTIONS (9)
  - Fatigue [Recovered/Resolved]
  - Ear infection [Recovered/Resolved]
  - Hysteroscopy [Unknown]
  - Sinusitis [Recovered/Resolved]
  - Surgery [Unknown]
  - Pelvic pain [Recovered/Resolved]
  - Migraine [Not Recovered/Not Resolved]
  - Hysterectomy [Unknown]
  - Vaginal infection [Recovered/Resolved]

NARRATIVE: CASE EVENT DATE: 2018
